FAERS Safety Report 6490364-X (Version None)
Quarter: 2009Q4

REPORT INFORMATION
  Report Type: 
  Country: None (occurrence: None)
  Receive Date: 20091208
  Receipt Date: 20091123
  Transmission Date: 20100525
  Serious: Yes (Other)
  Sender: FDA-Public Use
  Company Number: IDA-00297

PATIENT
  Age: 59 Year
  Sex: Male

DRUGS (2)
  1. PROPRANOLOL [Suspect]
  2. LISINOPRIL [Concomitant]

REACTIONS (3)
  - ADHESION [None]
  - SCLEROSING ENCAPSULATING PERITONITIS [None]
  - SMALL INTESTINAL OBSTRUCTION [None]
